FAERS Safety Report 20918765 (Version 1)
Quarter: 2022Q2

REPORT INFORMATION
  Report Type: Spontaneous
  Country: US (occurrence: US)
  Receive Date: 20220606
  Receipt Date: 20220606
  Transmission Date: 20220721
  Serious: Yes (Hospitalization, Other)
  Sender: FDA-Public Use
  Company Number: US-MACLEODS PHARMACEUTICALS US LTD-MAC2022035891

PATIENT

DRUGS (1)
  1. TAMSULOSIN [Suspect]
     Active Substance: TAMSULOSIN
     Indication: Benign prostatic hyperplasia
     Dosage: UNK
     Route: 065

REACTIONS (4)
  - Atrial tachycardia [Recovering/Resolving]
  - Postural orthostatic tachycardia syndrome [Recovering/Resolving]
  - Fall [Recovered/Resolved]
  - Syncope [Recovered/Resolved]
